FAERS Safety Report 10150278 (Version 1)
Quarter: 2014Q2

REPORT INFORMATION
  Report Type: Spontaneous
  Country: ES (occurrence: ES)
  Receive Date: 20140502
  Receipt Date: 20140502
  Transmission Date: 20141212
  Serious: Yes (Other)
  Sender: FDA-Public Use
  Company Number: ES-UCBSA-119609

PATIENT
  Age: 75 Year
  Sex: Female

DRUGS (1)
  1. CIMZIA [Suspect]
     Indication: RHEUMATOID ARTHRITIS
     Route: 058
     Dates: start: 20140410, end: 20140410

REACTIONS (3)
  - Confusional state [Recovered/Resolved]
  - Tremor [Recovered/Resolved]
  - Convulsion [Recovered/Resolved]
